FAERS Safety Report 5312654-6 (Version None)
Quarter: 2007Q2

REPORT INFORMATION
  Report Type: 
  Country: None (occurrence: None)
  Receive Date: 20070430
  Receipt Date: 20070208
  Transmission Date: 20071010
  Serious: No
  Sender: FDA-Public Use
  Company Number: 2007UW02642

PATIENT
  Age: 42 Year
  Sex: Female
  Weight: 79.4 kg

DRUGS (1)
  1. NEXIUM [Suspect]
     Route: 048
     Dates: start: 20070201, end: 20070205

REACTIONS (2)
  - CHEST PAIN [None]
  - PALPITATIONS [None]
